FAERS Safety Report 5142447-4 (Version None)
Quarter: 2006Q4

REPORT INFORMATION
  Report Type: 
  Country: None (occurrence: None)
  Receive Date: 20061027
  Receipt Date: 20061018
  Transmission Date: 20070319
  Serious: Yes (Death, Life-Threatening, Hospitalization)
  Sender: FDA-Public Use
  Company Number: 163-21880-06080332

PATIENT
  Age: 62 Year
  Sex: Female

DRUGS (12)
  1. REVLIMID [Suspect]
     Indication: MYELODYSPLASTIC SYNDROME
     Dosage: 10 MG, 1 IN 1 D, ORAL
     Route: 048
     Dates: start: 20060303, end: 20060905
  2. PROCRIT [Concomitant]
  3. HYDROXYUREA [Concomitant]
  4. ADVAIR DISKUS 100/50 [Concomitant]
  5. SPIRIVA [Concomitant]
  6. PRILOSEC [Concomitant]
  7. PREDNISONE TAB [Concomitant]
  8. ZINC (ZINC) [Concomitant]
  9. ASCORBIC ACID [Concomitant]
  10. CALCIUM (CALCIUM) [Concomitant]
  11. DHEA (PRASTERONE) [Concomitant]
  12. SELENIUM (SELENIUM) [Concomitant]

REACTIONS (8)
  - ABDOMINAL PAIN LOWER [None]
  - HYPERTENSION [None]
  - INTRA-ABDOMINAL HAEMORRHAGE [None]
  - PLEURAL EFFUSION [None]
  - PULMONARY EMBOLISM [None]
  - SPLENIC RUPTURE [None]
  - SPLENOMEGALY [None]
  - THIRST [None]
